FAERS Safety Report 8566683-X (Version None)
Quarter: 2012Q3

REPORT INFORMATION
  Report Type: 
  Country: None (occurrence: None)
  Receive Date: 20120803
  Receipt Date: 20110812
  Transmission Date: 20120928
  Serious: No
  Sender: FDA-Public Use
  Company Number: US-ABBOTT-11P-163-0846145-00

PATIENT
  Sex: Female
  Weight: 102.15 kg

DRUGS (9)
  1. PLAVIX [Concomitant]
     Indication: THROMBOSIS PROPHYLAXIS
  2. CARVEDILOL [Concomitant]
     Indication: HYPERTENSION
  3. VYTORIN [Concomitant]
     Indication: BLOOD CHOLESTEROL INCREASED
  4. ASPIRIN [Concomitant]
     Indication: CARDIAC DISORDER
  5. METFORMIN HYDROCHLORIDE [Concomitant]
     Indication: DIABETES MELLITUS
  6. VITAMIN D [Concomitant]
     Indication: VITAMIN SUPPLEMENTATION
  7. LOVASA [Concomitant]
     Indication: BLOOD CHOLESTEROL INCREASED
  8. NIASPAN [Suspect]
     Indication: CARDIAC DISORDER
     Dates: start: 20020101, end: 20110701
  9. LISINOPRIL [Concomitant]
     Indication: HYPERTENSION

REACTIONS (1)
  - MEDICATION RESIDUE [None]
